FAERS Safety Report 17553686 (Version 1)
Quarter: 2020Q1

REPORT INFORMATION
  Report Type: Spontaneous
  Country: JP (occurrence: JP)
  Receive Date: 20200318
  Receipt Date: 20200318
  Transmission Date: 20200409
  Serious: Yes (Other)
  Sender: FDA-Public Use
  Company Number: JP-TEVA-2020-JP-1203568

PATIENT
  Age: 3 Decade
  Sex: Female

DRUGS (3)
  1. PREDNISOLONE. [Suspect]
     Active Substance: PREDNISOLONE
     Indication: SYSTEMIC LUPUS ERYTHEMATOSUS
     Dosage: 15 MILLIGRAM DAILY; FOLLOWING DIAGNOSIS OF SLE; DOSE TAPERED FOLLOWING RESOLUTION OF RASH
     Route: 048
  2. PREDNISOLONE. [Suspect]
     Active Substance: PREDNISOLONE
     Indication: SYSTEMIC LUPUS ERYTHEMATOSUS
     Dosage: 50 MILLIGRAM DAILY; DOSE: 1 MG/KG/DAY FOLLOWING DIAGNOSIS OF LUPUS NEPHRITIS; DOSE DECREASED BY EVER
     Route: 048
  3. PREDNISOLONE. [Suspect]
     Active Substance: PREDNISOLONE
     Indication: SYSTEMIC LUPUS ERYTHEMATOSUS
     Dosage: 5.5 MILLIGRAM DAILY; FOLLOWING DOSE TAPERING; BY THE TIME THE PATIENT WAS 25 YEARS OLD
     Route: 048

REACTIONS (1)
  - Cushing^s syndrome [Recovering/Resolving]
